FAERS Safety Report 8129283-1 (Version None)
Quarter: 2012Q1

REPORT INFORMATION
  Report Type: 
  Country: None (occurrence: None)
  Receive Date: 20120210
  Receipt Date: 20111129
  Transmission Date: 20120608
  Serious: No
  Sender: FDA-Public Use
  Company Number: US-BRISTOL-MYERS SQUIBB COMPANY-16257065

PATIENT
  Age: 63 Year
  Sex: Female
  Weight: 90 kg

DRUGS (10)
  1. ALENDRONATE SODIUM [Concomitant]
  2. ORENCIA [Suspect]
     Indication: RHEUMATOID ARTHRITIS
     Dosage: LAST DOSE 18NOV11 1000MG:APPROXIMATELY 6-7 MONTHS  STARTED WITH LOWER DOSE + WENT UP TO 1000MG
     Route: 042
  3. CALCIUM [Concomitant]
  4. PREDNISONE [Concomitant]
  5. NEXIUM [Concomitant]
  6. FISH OIL [Concomitant]
  7. LIPITOR [Concomitant]
  8. AMLODIPINE [Concomitant]
  9. FOLIC ACID [Concomitant]
  10. CYMBALTA [Concomitant]

REACTIONS (4)
  - ALOPECIA [None]
  - BREAST DISCOMFORT [None]
  - DRUG INEFFECTIVE [None]
  - BREAST PAIN [None]
